FAERS Safety Report 10006100 (Version 1)
Quarter: 2014Q1

REPORT INFORMATION
  Report Type: Report from Study
  Country: US (occurrence: US)
  Receive Date: 20140313
  Receipt Date: 20140313
  Transmission Date: 20141002
  Serious: Yes (Life-Threatening, Hospitalization)
  Sender: FDA-Public Use
  Company Number: US-SA-2014SA031963

PATIENT
  Age: 91 Year
  Sex: Female

DRUGS (13)
  1. DRONEDARONE [Suspect]
     Indication: PRODUCT USED FOR UNKNOWN INDICATION
     Route: 065
  2. DABIGATRAN [Interacting]
     Indication: PRODUCT USED FOR UNKNOWN INDICATION
     Route: 065
  3. ROSUVASTATIN [Concomitant]
  4. ARICEPT [Concomitant]
  5. ACTONEL [Concomitant]
  6. METOPROLOL SUCCINATE [Concomitant]
  7. HYDROCHLOROTHIAZIDE [Concomitant]
  8. EZETIMIBE [Concomitant]
  9. VITAMIN D [Concomitant]
  10. CALCIUM CARBONATE [Concomitant]
  11. MEMANTINE [Concomitant]
  12. VALSARTAN [Concomitant]
  13. NASAL PREPARATIONS [Concomitant]

REACTIONS (2)
  - Rectal haemorrhage [Unknown]
  - Drug interaction [Unknown]
